FAERS Safety Report 8320734-6 (Version None)
Quarter: 2012Q2

REPORT INFORMATION
  Report Type: 
  Country: None (occurrence: None)
  Receive Date: 20120430
  Receipt Date: 20120417
  Transmission Date: 20120825
  Serious: Yes (Other)
  Sender: FDA-Public Use
  Company Number: US-ELI_LILLY_AND_COMPANY-US_020180042

PATIENT
  Age: 53 Year
  Sex: Female

DRUGS (1)
  1. EVISTA [Suspect]
     Indication: OSTEOPOROSIS PROPHYLAXIS
     Dosage: UNK, UNKNOWN
     Route: 048
     Dates: start: 19980101

REACTIONS (1)
  - OVARIAN CANCER [None]
